FAERS Safety Report 12415329 (Version 1)
Quarter: 2016Q2

REPORT INFORMATION
  Report Type: Spontaneous
  Country: US (occurrence: US)
  Receive Date: 20160530
  Receipt Date: 20160530
  Transmission Date: 20160815
  Serious: No
  Sender: FDA-Public Use
  Company Number: US-PFIZER INC-2016270639

PATIENT
  Age: 51 Year
  Sex: Male
  Weight: 82.1 kg

DRUGS (6)
  1. LYRICA [Suspect]
     Active Substance: PREGABALIN
     Dosage: 75 MG, 2X/DAY
     Route: 048
     Dates: start: 20160322, end: 20160427
  2. LANTUS [Concomitant]
     Active Substance: INSULIN GLARGINE
     Dosage: 10 IU, AS NEEDED (BEDTIME OR WHEN NEEDED)
  3. LANTUS [Concomitant]
     Active Substance: INSULIN GLARGINE
     Dosage: 62 IU, 1X/DAY (BEDTIME)
     Route: 058
     Dates: start: 20150410, end: 20160427
  4. LYRICA [Suspect]
     Active Substance: PREGABALIN
     Indication: NEUROPATHY PERIPHERAL
     Dosage: 50 MG, 3X/DAY
     Route: 048
  5. ASPIRIN. [Concomitant]
     Active Substance: ASPIRIN
     Dosage: 325 MG, DAILY
     Route: 048
     Dates: start: 20150414
  6. HUMALOG [Concomitant]
     Active Substance: INSULIN LISPRO
     Dosage: 50 IU, 2X/DAY
     Route: 058

REACTIONS (5)
  - Decreased interest [Unknown]
  - Joint swelling [Unknown]
  - Muscular weakness [Unknown]
  - Libido decreased [Unknown]
  - Arthralgia [Unknown]
